FAERS Safety Report 5207606-0 (Version None)
Quarter: 2007Q1

REPORT INFORMATION
  Report Type: 
  Country: None (occurrence: None)
  Receive Date: 20070112
  Receipt Date: 20070103
  Transmission Date: 20070707
  Serious: Yes (Other)
  Sender: FDA-Public Use
  Company Number: US-PFIZER INC-2007001716

PATIENT
  Sex: Female

DRUGS (4)
  1. DEPO-PROVERA [Suspect]
     Indication: MENSTRUAL DISCOMFORT
     Dosage: FREQ:1ST INJECTION, 1ST CYCLE
     Route: 030
     Dates: start: 20000101, end: 20000101
  2. DEPO-PROVERA [Suspect]
     Dosage: FREQ:LAST INJECTION, 1ST CYCLE
     Route: 030
     Dates: start: 20020101, end: 20020101
  3. DEPO-PROVERA [Suspect]
     Dosage: FREQ:1ST INJECTION, 2ND CYCLE
     Route: 030
     Dates: start: 20040401, end: 20040401
  4. DEPO-PROVERA [Suspect]
     Dosage: FREQ:LAST INJECTION, 2ND CYCLE
     Route: 030
     Dates: start: 20050401, end: 20050401

REACTIONS (7)
  - ABDOMINAL DISTENSION [None]
  - ACNE [None]
  - DYSMENORRHOEA [None]
  - HAEMORRHOIDS [None]
  - MENORRHAGIA [None]
  - MIGRAINE [None]
  - RECTAL HAEMORRHAGE [None]
